FAERS Safety Report 11276341 (Version 2)
Quarter: 2015Q3

REPORT INFORMATION
  Report Type: Spontaneous
  Country: US (occurrence: US)
  Receive Date: 20150716
  Receipt Date: 20150727
  Transmission Date: 20151125
  Serious: No
  Sender: FDA-Public Use
  Company Number: US-PFIZER INC-2015231250

PATIENT
  Age: 44 Year
  Sex: Female
  Weight: 54 kg

DRUGS (4)
  1. PREMPRO [Suspect]
     Active Substance: ESTROGENS, CONJUGATED\MEDROXYPROGESTERONE ACETATE
     Dosage: 0.45 UNK
  2. PREMPRO [Suspect]
     Active Substance: ESTROGENS, CONJUGATED\MEDROXYPROGESTERONE ACETATE
     Indication: HORMONE REPLACEMENT THERAPY
     Dosage: 0.45 UNK
     Dates: start: 201406
  3. PREMPRO [Suspect]
     Active Substance: ESTROGENS, CONJUGATED\MEDROXYPROGESTERONE ACETATE
     Dosage: 0.625 UNK
     Dates: start: 201408
  4. INSULIN [Concomitant]
     Active Substance: INSULIN NOS

REACTIONS (9)
  - Alopecia [Unknown]
  - Crying [Unknown]
  - Breast mass [Unknown]
  - Breast enlargement [Unknown]
  - Anxiety [Unknown]
  - Intentional product use issue [Not Recovered/Not Resolved]
  - Breast tenderness [Unknown]
  - Breast pain [Unknown]
  - Weight decreased [Unknown]

NARRATIVE: CASE EVENT DATE: 2014
